FAERS Safety Report 5175348-6 (Version None)
Quarter: 2006Q4

REPORT INFORMATION
  Report Type: 
  Country: None (occurrence: None)
  Receive Date: 20061212
  Receipt Date: 20061212
  Transmission Date: 20070319
  Serious: Yes (Other)
  Sender: FDA-Public Use
  Company Number: None

PATIENT
  Age: 75 Year
  Sex: Female
  Weight: 63.5 kg

DRUGS (4)
  1. TRIMETHOBENZAMIDE [Suspect]
     Indication: NAUSEA
     Dosage: 200MG SUPPOSITORY
     Dates: start: 20061113
  2. TRIMETHOBENZAMIDE [Suspect]
     Indication: VOMITING
     Dosage: 200MG SUPPOSITORY
     Dates: start: 20061113
  3. ONDANSETRON [Suspect]
     Indication: NAUSEA
     Dosage: 32MG IV
     Route: 042
     Dates: start: 20061112, end: 20061115
  4. ONDANSETRON [Suspect]
     Indication: VOMITING
     Dosage: 32MG IV
     Route: 042
     Dates: start: 20061112, end: 20061115

REACTIONS (1)
  - RASH GENERALISED [None]
